FAERS Safety Report 12425910 (Version 1)
Quarter: 2016Q2

REPORT INFORMATION
  Report Type: Spontaneous
  Country: CH (occurrence: PT)
  Receive Date: 20160601
  Receipt Date: 20160601
  Transmission Date: 20160815
  Serious: Yes (Hospitalization)
  Sender: FDA-Public Use
  Company Number: CH-LPDUSPRD-20160457

PATIENT
  Age: 90 Year
  Sex: Female
  Weight: 60 kg

DRUGS (11)
  1. VENOFER [Suspect]
     Active Substance: IRON SUCROSE
     Dosage: 400 MG,1 X PER WEEK FOR 2 WKS
     Route: 041
     Dates: start: 20160401, end: 20160401
  2. AAS [Concomitant]
     Active Substance: ASPIRIN
     Dosage: DOSE NOT PROVIDED
     Route: 048
  3. BECLOTAIDE [Concomitant]
     Active Substance: BECLOMETHASONE DIPROPIONATE
     Dosage: DOSE NOT PROVIDED
     Route: 055
  4. JANUMET [Concomitant]
     Active Substance: METFORMIN HYDROCHLORIDE\SITAGLIPTIN PHOSPHATE
     Dosage: DOSE NOT PROVIDED
     Route: 048
  5. SIMVASTATIN. [Concomitant]
     Active Substance: SIMVASTATIN
     Dosage: 20 MG
     Route: 048
  6. VENTILAN [Concomitant]
     Active Substance: ALBUTEROL SULFATE
     Dosage: DOSE NOT PROVIDED
     Route: 065
  7. DAFLON [Concomitant]
     Active Substance: DIOSMIN\HESPERIDIN
     Dosage: 500 MG
     Route: 048
  8. DOMPERIDONE [Concomitant]
     Active Substance: DOMPERIDONE
     Dosage: DOSE NOT PROVIDED
     Route: 065
  9. ENALAPRIL [Concomitant]
     Active Substance: ENALAPRIL
     Dosage: 20 MG
     Route: 065
  10. BIOFLAVONOIDS [Concomitant]
     Active Substance: BIOFLAVONOIDS
     Dosage: 500 MG
     Route: 065
  11. ATROVENT PA [Concomitant]
     Dosage: DOSE NOT PROVIDED
     Route: 055

REACTIONS (7)
  - Loss of consciousness [Unknown]
  - Pyrexia [Unknown]
  - Malaise [Unknown]
  - Blood pressure decreased [Unknown]
  - Syncope [Unknown]
  - Dyspnoea [Unknown]
  - Headache [Unknown]

NARRATIVE: CASE EVENT DATE: 20160401
